FAERS Safety Report 6003239-7 (Version None)
Quarter: 2008Q4

REPORT INFORMATION
  Report Type: 
  Country: None (occurrence: None)
  Receive Date: 20081212
  Receipt Date: 20081212
  Transmission Date: 20090506
  Serious: Yes (Other)
  Sender: FDA-Public Use
  Company Number: None

PATIENT
  Age: 60 Year
  Sex: Female
  Weight: 71.6683 kg

DRUGS (1)
  1. CYTOMEL [Suspect]
     Indication: HYPOTHYROIDISM
     Dosage: 1 DAILY PO
     Route: 048
     Dates: start: 20081126, end: 20081207

REACTIONS (7)
  - BURNING SENSATION [None]
  - LOCAL SWELLING [None]
  - RASH ERYTHEMATOUS [None]
  - RASH PRURITIC [None]
  - SKIN DISORDER [None]
  - SKIN EXFOLIATION [None]
  - SWELLING FACE [None]
